FAERS Safety Report 11765869 (Version 1)
Quarter: 2015Q4

REPORT INFORMATION
  Report Type: Report from Study
  Country: US (occurrence: US)
  Receive Date: 20151122
  Receipt Date: 20151122
  Transmission Date: 20160304
  Serious: No
  Sender: FDA-Public Use
  Company Number: US-009507513-1511USA009002

PATIENT
  Age: 19 Year
  Sex: Female
  Weight: 76.64 kg

DRUGS (1)
  1. IMPLANON [Suspect]
     Active Substance: ETONOGESTREL
     Dosage: UNK
     Route: 059
     Dates: start: 201501, end: 20151116

REACTIONS (4)
  - Medical device removal [Unknown]
  - Mood altered [Unknown]
  - Menstruation irregular [Unknown]
  - Weight increased [Unknown]

NARRATIVE: CASE EVENT DATE: 2015
